FAERS Safety Report 4303380-0 (Version None)
Quarter: 2004Q1

REPORT INFORMATION
  Report Type: 
  Country: None (occurrence: None)
  Receive Date: 20040223
  Receipt Date: 20040209
  Transmission Date: 20041129
  Serious: Yes (Life-Threatening)
  Sender: FDA-Public Use
  Company Number: 204684

PATIENT
  Age: 78 Year
  Sex: Male

DRUGS (2)
  1. ACTILYSE (ALTEPLASE) PWDR + SOLVENT, INFUSION SOLN [Suspect]
     Indication: ISCHAEMIC STROKE
     Dosage: 67.5 MG, SINGLE,  INTRAVENOUS
     Route: 042
     Dates: start: 20031030, end: 20031030
  2. ASPIRIN [Concomitant]

REACTIONS (2)
  - HAEMATEMESIS [None]
  - PULMONARY OEDEMA [None]
